FAERS Safety Report 6205637-5 (Version None)
Quarter: 2009Q2

REPORT INFORMATION
  Report Type: 
  Country: None (occurrence: None)
  Receive Date: 20090527
  Receipt Date: 20090410
  Transmission Date: 20091009
  Serious: No
  Sender: FDA-Public Use
  Company Number: US-ABBOTT-09P-163-0568170-00

PATIENT
  Sex: Male

DRUGS (5)
  1. SIMCOR [Suspect]
     Indication: BLOOD CHOLESTEROL INCREASED
     Dosage: 500/20MG DAILY
     Route: 048
     Dates: start: 20090212, end: 20090408
  2. SIMCOR [Suspect]
     Indication: PROPHYLAXIS
  3. PLAVIX [Concomitant]
     Indication: MYOCARDIAL INFARCTION
     Dosage: UNKNOWN
     Route: 048
  4. TYLENOL (CAPLET) [Concomitant]
     Indication: ARTHRALGIA
     Route: 048
  5. UNKNOWN HIGH BLOOD PRESSURE [Concomitant]
     Indication: HYPERTENSION
     Dosage: UNKNOWN

REACTIONS (3)
  - FLUSHING [None]
  - GENERALISED ERYTHEMA [None]
  - PRURITUS [None]
